FAERS Safety Report 4665295-8 (Version None)
Quarter: 2005Q2

REPORT INFORMATION
  Report Type: 
  Country: None (occurrence: None)
  Receive Date: 20050517
  Receipt Date: 20050502
  Transmission Date: 20051028
  Serious: Yes (Hospitalization)
  Sender: FDA-Public Use
  Company Number: US_0505116774

PATIENT
  Age: 0 Month
  Sex: Female
  Weight: 2 kg

DRUGS (1)
  1. HUMULIN R [Suspect]
     Dates: start: 20010101, end: 20020101

REACTIONS (6)
  - DRUG EXPOSURE DURING PREGNANCY [None]
  - EYE DISORDER [None]
  - HYPOGLYCAEMIA NEONATAL [None]
  - NEONATAL DISORDER [None]
  - NEONATAL RESPIRATORY DISTRESS SYNDROME [None]
  - PREMATURE BABY [None]
